FAERS Safety Report 4685727-9 (Version None)
Quarter: 2005Q2

REPORT INFORMATION
  Report Type: 
  Country: None (occurrence: None)
  Receive Date: 20050608
  Receipt Date: 20050527
  Transmission Date: 20051028
  Serious: Yes (Other)
  Sender: FDA-Public Use
  Company Number: HQWYE500203MAY05

PATIENT
  Age: 15 Year
  Sex: Female
  Weight: 68.1 kg

DRUGS (1)
  1. NORPLANT SYSTEM [Suspect]
     Indication: CONTRACEPTION
     Dosage: SUBCUTANEOUS
     Route: 058
     Dates: start: 19950101

REACTIONS (20)
  - AMENORRHOEA [None]
  - APPLICATION SITE OEDEMA [None]
  - BLINDNESS TRANSIENT [None]
  - CHEST PAIN [None]
  - DYSMENORRHOEA [None]
  - FATIGUE [None]
  - HYPOAESTHESIA [None]
  - INFERTILITY FEMALE [None]
  - MENOMETRORRHAGIA [None]
  - MENSTRUAL DISORDER [None]
  - MENSTRUATION IRREGULAR [None]
  - MIGRAINE [None]
  - MUSCLE SPASMS [None]
  - NAUSEA [None]
  - NEURALGIA [None]
  - OEDEMA PERIPHERAL [None]
  - PRURITUS [None]
  - SKIN DISCOLOURATION [None]
  - SYNCOPE [None]
  - VERTIGO [None]
